FAERS Safety Report 9153048 (Version 1)
Quarter: 2013Q1

REPORT INFORMATION
  Report Type: Spontaneous
  Country: US (occurrence: US)
  Receive Date: 20130310
  Receipt Date: 20130310
  Transmission Date: 20140127
  Serious: No
  Sender: FDA-Public Use
  Company Number: US-ASTRAZENECA-2013SE08717

PATIENT
  Sex: Male

DRUGS (1)
  1. QUETIAPINE [Suspect]
     Dosage: GENERIC
     Route: 048

REACTIONS (3)
  - Feeling abnormal [Unknown]
  - Feeling abnormal [Unknown]
  - Hypersomnia [Unknown]
